FAERS Safety Report 6661486-5 (Version None)
Quarter: 2010Q1

REPORT INFORMATION
  Report Type: 
  Country: None (occurrence: None)
  Receive Date: 20100331
  Receipt Date: 20100322
  Transmission Date: 20100710
  Serious: Yes (Life-Threatening, Other)
  Sender: FDA-Public Use
  Company Number: BR-PFIZER INC-2010033777

PATIENT
  Age: 51 Year
  Sex: Female
  Weight: 54 kg

DRUGS (3)
  1. REVATIO [Suspect]
     Indication: SCLERODERMA
     Dosage: UNK
     Route: 048
     Dates: start: 20100224, end: 20100101
  2. SILDENAFIL CITRATE [Suspect]
     Indication: PULMONARY HYPERTENSION
     Dosage: 25 MG, 3X/DAY
     Route: 048
  3. PREDNISONE [Concomitant]
     Dosage: 5 MG, UNK

REACTIONS (3)
  - QUADRIPARESIS [None]
  - RESPIRATORY FAILURE [None]
  - TACHYCARDIA [None]
